FAERS Safety Report 4939135-3 (Version None)
Quarter: 2006Q1

REPORT INFORMATION
  Report Type: 
  Country: None (occurrence: None)
  Receive Date: 20060306
  Receipt Date: 20060220
  Transmission Date: 20060701
  Serious: Yes (Hospitalization)
  Sender: FDA-Public Use
  Company Number: 2006026363

PATIENT
  Age: 88 Year
  Sex: Female

DRUGS (7)
  1. CELEBREX [Suspect]
     Indication: BACK PAIN
     Dosage: ORAL
     Route: 048
     Dates: end: 20040401
  2. ALBYL-E (ACETYLSALICYLIC ACID, MAGNESIUM OXIDE) [Suspect]
     Indication: ILL-DEFINED DISORDER
     Dosage: ORAL
     Route: 048
     Dates: end: 20040401
  3. ACETAMINOPHEN [Concomitant]
  4. IMPORTAL (LACTITOL) [Concomitant]
  5. LACTULOSE [Concomitant]
  6. CIPRALEX (ESCITALOPRAM) [Concomitant]
  7. TIMPILO (PILOCARPINE HYDROCHLORIDE, TIMOLOL MALEATE) [Concomitant]

REACTIONS (8)
  - ANAEMIA [None]
  - BLOOD ALBUMIN DECREASED [None]
  - GASTRIC ULCER [None]
  - HAEMATEMESIS [None]
  - HAEMORRHAGE [None]
  - HELICOBACTER PYLORI IDENTIFICATION TEST POSITIVE [None]
  - MALNUTRITION [None]
  - PROTEIN TOTAL DECREASED [None]
